FAERS Safety Report 7145050-X (Version None)
Quarter: 2010Q4

REPORT INFORMATION
  Report Type: 
  Country: None (occurrence: None)
  Receive Date: 20101208
  Receipt Date: 20101126
  Transmission Date: 20110411
  Serious: Yes (Hospitalization)
  Sender: FDA-Public Use
  Company Number: PHHY2010JP36373

PATIENT
  Sex: Female
  Weight: 63 kg

DRUGS (1)
  1. TEGRETOL [Suspect]
     Dosage: 50 TABLETS ONCE TOTAL
     Route: 048
     Dates: start: 20100531, end: 20100531

REACTIONS (4)
  - ANTICONVULSANT DRUG LEVEL INCREASED [None]
  - COMA [None]
  - INTENTIONAL OVERDOSE [None]
  - SUICIDE ATTEMPT [None]
